APPROVED DRUG PRODUCT: IVERMECTIN
Active Ingredient: IVERMECTIN
Strength: 3MG
Dosage Form/Route: TABLET;ORAL
Application: A218324 | Product #001 | TE Code: AB
Applicant: SENORES PHARMACEUTICALS INC
Approved: Oct 16, 2024 | RLD: No | RS: No | Type: RX